FAERS Safety Report 10437793 (Version 1)
Quarter: 2014Q3

REPORT INFORMATION
  Report Type: Spontaneous
  Country: US (occurrence: None)
  Receive Date: 20140905
  Receipt Date: 20140905
  Transmission Date: 20150326
  Serious: Yes (Hospitalization)
  Sender: FDA-Public Use
  Company Number: None

PATIENT
  Sex: Male

DRUGS (2)
  1. NICOTINE GUM [Suspect]
     Active Substance: NICOTINE
  2. NICOTINE TRANSDERMAL SYSTEM [Suspect]
     Active Substance: NICOTINE
     Route: 061

REACTIONS (5)
  - Accidental overdose [None]
  - Renal impairment [None]
  - Condition aggravated [None]
  - Tobacco user [None]
  - Drug dependence [None]
